FAERS Safety Report 18231886 (Version 1)
Quarter: 2020Q3

REPORT INFORMATION
  Report Type: Report from Study
  Country: US (occurrence: US)
  Receive Date: 20200904
  Receipt Date: 20200904
  Transmission Date: 20201103
  Serious: Yes (Death)
  Sender: FDA-Public Use
  Company Number: US-MYLANLABS-2020M1076158

PATIENT
  Age: 65 Year

DRUGS (4)
  1. MITOXANTRONE [Suspect]
     Active Substance: MITOXANTRONE HYDROCHLORIDE
     Indication: HAEMATOLOGICAL MALIGNANCY
     Route: 065
  2. CLADRIBINE. [Suspect]
     Active Substance: CLADRIBINE
     Indication: HAEMATOLOGICAL MALIGNANCY
     Route: 065
  3. DECITABINE. [Suspect]
     Active Substance: DECITABINE
     Indication: HAEMATOLOGICAL MALIGNANCY
     Dosage: 20 MILLIGRAM/SQ. METER, QD
     Route: 065
  4. CYTARABINE. [Suspect]
     Active Substance: CYTARABINE
     Indication: HAEMATOLOGICAL MALIGNANCY
     Route: 065

REACTIONS (5)
  - Infection [Fatal]
  - Encephalopathy [Fatal]
  - Hyperbilirubinaemia [Fatal]
  - Left ventricular dysfunction [Fatal]
  - Neutropenic sepsis [Fatal]
